FAERS Safety Report 6413129-3 (Version None)
Quarter: 2009Q4

REPORT INFORMATION
  Report Type: 
  Country: None (occurrence: None)
  Receive Date: 20091026
  Receipt Date: 20091016
  Transmission Date: 20100525
  Serious: No
  Sender: FDA-Public Use
  Company Number: US-B.I. PHARMACEUTICALS,INC./RIDGEFIELD-2009-BP-12230PF

PATIENT
  Sex: Female
  Weight: 90.7 kg

DRUGS (6)
  1. SPIRIVA [Suspect]
     Indication: CHRONIC OBSTRUCTIVE PULMONARY DISEASE
     Dosage: 18 MCG
     Route: 055
     Dates: start: 20080101, end: 20091012
  2. ADVAIR DISKUS 100/50 [Concomitant]
     Indication: CHRONIC OBSTRUCTIVE PULMONARY DISEASE
     Route: 055
  3. ATENOLOL [Concomitant]
     Indication: HYPERTENSION
     Dosage: 25 MG
     Route: 048
  4. PROZAC [Concomitant]
     Indication: DEPRESSION
     Dosage: 40 MG
     Route: 048
  5. PROVIGIL [Concomitant]
     Indication: POTENTIATING DRUG INTERACTION
     Dosage: 100 MG
     Route: 048
  6. SPIRINO/HCTZ [Concomitant]
     Indication: HYPERTENSION
     Route: 048

REACTIONS (3)
  - EYE PAIN [None]
  - VISUAL ACUITY REDUCED [None]
  - VISUAL IMPAIRMENT [None]
